FAERS Safety Report 20266275 (Version 1)
Quarter: 2021Q4

REPORT INFORMATION
  Report Type: Spontaneous
  Country: CN (occurrence: CN)
  Receive Date: 20211231
  Receipt Date: 20211231
  Transmission Date: 20220303
  Serious: Yes (Hospitalization, Other)
  Sender: FDA-Public Use
  Company Number: CN-GLAXOSMITHKLINE-CNCH2021APC092656

PATIENT
  Age: 86 Year
  Sex: Female
  Weight: 42.6 kg

DRUGS (2)
  1. IBUPROFEN [Suspect]
     Active Substance: IBUPROFEN
     Indication: Upper respiratory tract infection
     Dosage: 0.3 G, BID
     Route: 048
     Dates: start: 20211213, end: 20211216
  2. IBUPROFEN [Suspect]
     Active Substance: IBUPROFEN
     Indication: Nasopharyngitis

REACTIONS (7)
  - Liver injury [Recovering/Resolving]
  - Yellow skin [Recovered/Resolved]
  - Ocular icterus [Recovering/Resolving]
  - Pruritus [Recovering/Resolving]
  - Chromaturia [Recovering/Resolving]
  - Abnormal faeces [Recovering/Resolving]
  - Product use in unapproved indication [Unknown]

NARRATIVE: CASE EVENT DATE: 20211213
